FAERS Safety Report 4375905-0 (Version None)
Quarter: 2004Q2

REPORT INFORMATION
  Report Type: 
  Country: None (occurrence: None)
  Receive Date: 20040607
  Receipt Date: 20040525
  Transmission Date: 20050107
  Serious: Yes (Hospitalization, Disabling)
  Sender: FDA-Public Use
  Company Number: HQWYE116526MAY04

PATIENT
  Age: 39 Year
  Sex: Male

DRUGS (6)
  1. EFFEXOR [Suspect]
     Indication: DEPRESSION
     Dosage: SEE IMAGE
     Route: 048
     Dates: start: 20030923, end: 20031001
  2. EFFEXOR [Suspect]
     Indication: PSYCHOTIC DISORDER
     Dosage: SEE IMAGE
     Route: 048
     Dates: start: 20030923, end: 20031001
  3. EFFEXOR [Suspect]
     Indication: DEPRESSION
     Dosage: SEE IMAGE
     Route: 048
     Dates: start: 20031002
  4. EFFEXOR [Suspect]
     Indication: PSYCHOTIC DISORDER
     Dosage: SEE IMAGE
     Route: 048
     Dates: start: 20031002
  5. LORAZEPAM [Concomitant]
  6. STILNOX (ZOLPIDEM) [Concomitant]

REACTIONS (3)
  - INTENTIONAL SELF-INJURY [None]
  - LIMB TRAUMATIC AMPUTATION [None]
  - SUICIDE ATTEMPT [None]
